FAERS Safety Report 4489449-9 (Version None)
Quarter: 2004Q4

REPORT INFORMATION
  Report Type: 
  Country: None (occurrence: None)
  Receive Date: 20041028
  Receipt Date: 20041018
  Transmission Date: 20050328
  Serious: Yes (Hospitalization)
  Sender: FDA-Public Use
  Company Number: HQWYE330122JUL04

PATIENT
  Age: 24 Year
  Sex: Male

DRUGS (6)
  1. RAPAMUNE [Suspect]
     Indication: PROPHYLAXIS AGAINST TRANSPLANT REJECTION
     Dosage: 3 MG 1X PER 1 DAY ORAL
     Route: 048
     Dates: start: 20040605
  2. CYCLOSPORINE [Concomitant]
  3. BACTRIM [Concomitant]
  4. NYSTATINE              (NYSTATIN) [Concomitant]
  5. BACTRIM [Concomitant]
  6. NYSTATINE (NYSTATIN) [Concomitant]

REACTIONS (5)
  - GRAFT COMPLICATION [None]
  - HAEMOGLOBIN DECREASED [None]
  - KIDNEY TRANSPLANT REJECTION [None]
  - URETHRAL DILATATION [None]
  - WHITE BLOOD CELL COUNT DECREASED [None]
